FAERS Safety Report 10555522 (Version 1)
Quarter: 2014Q4

REPORT INFORMATION
  Report Type: Spontaneous
  Country: NL (occurrence: NL)
  Receive Date: 20141030
  Receipt Date: 20141030
  Transmission Date: 20150529
  Serious: Yes (Hospitalization)
  Sender: FDA-Public Use
  Company Number: NL-BAXTER-2014BAX063701

PATIENT
  Age: 29 Year
  Sex: Male

DRUGS (2)
  1. METRONIDAZOL 5 MG/ML IN VIAFLO, OPLOSSING VOOR INTRAVEINEUZE INFUSIE [Suspect]
     Active Substance: METRONIDAZOLE
     Indication: APPENDICEAL ABSCESS
     Route: 042
  2. CEFUROXIME. [Suspect]
     Active Substance: CEFUROXIME
     Indication: APPENDICEAL ABSCESS
     Route: 042

REACTIONS (1)
  - Anti factor V antibody positive [Recovered/Resolved]
